FAERS Safety Report 8340360-2 (Version None)
Quarter: 2012Q2

REPORT INFORMATION
  Report Type: 
  Country: None (occurrence: None)
  Receive Date: 20120507
  Receipt Date: 20120502
  Transmission Date: 20120825
  Serious: No
  Sender: FDA-Public Use
  Company Number: US-PFIZER INC-2012108916

PATIENT
  Sex: Female

DRUGS (1)
  1. CAMPTOSAR [Suspect]
     Indication: COLON CANCER
     Dosage: 260 MG, UNK
     Dates: start: 20110908, end: 20120406

REACTIONS (2)
  - DISEASE PROGRESSION [None]
  - COLON CANCER [None]
